FAERS Safety Report 5316023-4 (Version None)
Quarter: 2007Q2

REPORT INFORMATION
  Report Type: 
  Country: None (occurrence: None)
  Receive Date: 20070503
  Receipt Date: 20070426
  Transmission Date: 20071010
  Serious: Yes (Other)
  Sender: FDA-Public Use
  Company Number: JP-SANOFI-SYNTHELABO-A01200704229

PATIENT
  Age: 81 Year
  Sex: Female
  Weight: 43 kg

DRUGS (6)
  1. OMEPRAL [Concomitant]
     Indication: REFLUX OESOPHAGITIS
     Route: 065
  2. LUVOX [Concomitant]
     Indication: DEPRESSION
     Route: 065
  3. GABALON [Concomitant]
     Indication: SPASTIC PARALYSIS
     Dosage: UNK
     Route: 065
  4. PROSNER [Concomitant]
     Indication: ARTERIAL OCCLUSIVE DISEASE
     Route: 065
  5. BLOPRESS [Concomitant]
     Indication: HYPERTENSION
     Route: 065
  6. PLAVIX [Suspect]
     Indication: PROPHYLAXIS
     Route: 048
     Dates: start: 20070404, end: 20070423

REACTIONS (3)
  - ALANINE AMINOTRANSFERASE INCREASED [None]
  - BLOOD CREATINE PHOSPHOKINASE INCREASED [None]
  - PLEURAL EFFUSION [None]
